FAERS Safety Report 10400271 (Version 3)
Quarter: 2014Q3

REPORT INFORMATION
  Report Type: Spontaneous
  Country: DE (occurrence: DE)
  Receive Date: 20140821
  Receipt Date: 20140919
  Transmission Date: 20150326
  Serious: Yes (Death)
  Sender: FDA-Public Use
  Company Number: DE-ABBVIE-14P-062-1274461-00

PATIENT
  Age: 85 Year
  Sex: Male
  Weight: 74 kg

DRUGS (3)
  1. ACE INHIBITORS [Concomitant]
     Active Substance: UNSPECIFIED INGREDIENT
     Indication: PRODUCT USED FOR UNKNOWN INDICATION
  2. LEUPRORELIN ACETATE (ENANTONE) [Suspect]
     Active Substance: LEUPROLIDE ACETATE
     Indication: PROSTATE CANCER
     Dosage: ONCE
     Route: 065
     Dates: start: 20120214, end: 20120214
  3. LEUPRORELIN ACETATE (TRENANTONE) [Suspect]
     Active Substance: LEUPROLIDE ACETATE
     Indication: PROSTATE CANCER
     Route: 065
     Dates: start: 20120312, end: 20130304

REACTIONS (1)
  - Death [Fatal]

NARRATIVE: CASE EVENT DATE: 20130404
